FAERS Safety Report 25440691 (Version 3)
Quarter: 2025Q3

REPORT INFORMATION
  Report Type: Spontaneous
  Country: IL (occurrence: IL)
  Receive Date: 20250616
  Receipt Date: 20250804
  Transmission Date: 20251020
  Serious: Yes (Hospitalization, Other)
  Sender: PURDUE
  Company Number: IL-NAPPMUNDI-GBR-2025-0126327

PATIENT
  Age: 77 Year
  Sex: Male

DRUGS (4)
  1. BUTRANS [Suspect]
     Active Substance: BUPRENORPHINE
     Indication: Headache
     Route: 065
     Dates: end: 2025
  2. BUTRANS [Suspect]
     Active Substance: BUPRENORPHINE
     Indication: Ear pain
  3. BISOPROLOL FUMARATE [Concomitant]
     Active Substance: BISOPROLOL FUMARATE
     Indication: Product used for unknown indication
     Route: 065
  4. ASPIRIN [Concomitant]
     Active Substance: ASPIRIN
     Indication: Product used for unknown indication
     Route: 065

REACTIONS (7)
  - Myocardial infarction [Unknown]
  - Dizziness [Unknown]
  - Confusional state [Unknown]
  - Product administered at inappropriate site [Unknown]
  - Nausea [Unknown]
  - Vomiting [Unknown]
  - Product communication issue [Unknown]

NARRATIVE: CASE EVENT DATE: 20250101
